FAERS Safety Report 9516677 (Version 1)
Quarter: 2013Q3

REPORT INFORMATION
  Report Type: Spontaneous
  Country: US (occurrence: None)
  Receive Date: 20130910
  Receipt Date: 20130910
  Transmission Date: 20140515
  Serious: Yes (Other)
  Sender: FDA-Public Use
  Company Number: None

PATIENT
  Age: 33 Year
  Sex: Female
  Weight: 67.59 kg

DRUGS (2)
  1. RHOGAM [Suspect]
     Indication: RHESUS ANTIBODIES NEGATIVE
  2. RHOGAM [Suspect]
     Indication: PREGNANCY

REACTIONS (1)
  - Hepatitis C [None]
